FAERS Safety Report 16201116 (Version 2)
Quarter: 2020Q1

REPORT INFORMATION
  Report Type: Spontaneous
  Country: US (occurrence: US)
  Receive Date: 20190416
  Receipt Date: 20200128
  Transmission Date: 20200409
  Serious: No
  Sender: FDA-Public Use
  Company Number: US-LUPIN PHARMACEUTICALS INC.-2019-01126

PATIENT
  Sex: Female

DRUGS (1)
  1. MY WAY [Suspect]
     Active Substance: LEVONORGESTREL
     Indication: CONTRACEPTION
     Dosage: UNK, SINGLE
     Route: 048
     Dates: start: 20190106

REACTIONS (1)
  - Amenorrhoea [Not Recovered/Not Resolved]
